FAERS Safety Report 13564749 (Version 1)
Quarter: 2017Q2

REPORT INFORMATION
  Report Type: Spontaneous
  Country: US (occurrence: US)
  Receive Date: 20170519
  Receipt Date: 20170519
  Transmission Date: 20170830
  Serious: Yes (Other)
  Sender: FDA-Public Use
  Company Number: US-PFIZER INC-2017215047

PATIENT
  Sex: Female

DRUGS (1)
  1. XELJANZ XR [Suspect]
     Active Substance: TOFACITINIB CITRATE
     Dosage: 11 MG, UNK

REACTIONS (17)
  - Nail disorder [Unknown]
  - Back pain [Unknown]
  - Constipation [Unknown]
  - Weight decreased [Unknown]
  - Asthenia [Recovering/Resolving]
  - Abdominal pain [Unknown]
  - Tongue discomfort [Unknown]
  - Musculoskeletal stiffness [Unknown]
  - Eye irritation [Unknown]
  - Fatigue [Unknown]
  - Diarrhoea [Unknown]
  - Appetite disorder [Unknown]
  - Temperature intolerance [Unknown]
  - Raynaud^s phenomenon [Unknown]
  - Sjogren^s syndrome [Unknown]
  - Onychoclasis [Unknown]
  - Tongue dry [Unknown]
